FAERS Safety Report 8000119-2 (Version None)
Quarter: 2011Q4

REPORT INFORMATION
  Report Type: 
  Country: None (occurrence: None)
  Receive Date: 20111220
  Receipt Date: 20111220
  Transmission Date: 20120403
  Serious: Yes (Other)
  Sender: FDA-Public Use
  Company Number: None

PATIENT
  Age: 81 Year
  Sex: Female
  Weight: 54.4316 kg

DRUGS (1)
  1. PROLIA [Suspect]
     Indication: OSTEOPOROSIS
     Dates: start: 20110317

REACTIONS (9)
  - AGEUSIA [None]
  - DEAFNESS [None]
  - FALL [None]
  - LIGAMENT SPRAIN [None]
  - NAUSEA [None]
  - MALAISE [None]
  - HEART RATE IRREGULAR [None]
  - VOMITING PROJECTILE [None]
  - BONE DISORDER [None]
